FAERS Safety Report 10076578 (Version 2)
Quarter: 2014Q2

REPORT INFORMATION
  Report Type: Spontaneous
  Country: US (occurrence: US)
  Receive Date: 20140414
  Receipt Date: 20140519
  Transmission Date: 20141212
  Serious: No
  Sender: FDA-Public Use
  Company Number: US-PFIZER INC-2014102825

PATIENT
  Age: 16 Year
  Sex: Male

DRUGS (5)
  1. GEODON [Suspect]
     Indication: PSYCHOTIC DISORDER
     Dosage: 20 MG, 3X/DAY
     Route: 048
     Dates: start: 20131030
  2. GEODON [Suspect]
     Dosage: UNK
     Route: 048
  3. INTUNIV [Concomitant]
     Dosage: 4 MG, 1X/DAY (Q AM)
  4. PRAZOSIN [Concomitant]
     Dosage: 3 MG, 1X/DAY (Q AM)
  5. LAMICTAL [Concomitant]
     Dosage: 300 MG, 1X/DAY (Q AM)

REACTIONS (3)
  - Blood prolactin increased [Unknown]
  - Hyperprolactinaemia [Unknown]
  - Gynaecomastia [Not Recovered/Not Resolved]
